FAERS Safety Report 9106840 (Version 2)
Quarter: 2013Q2

REPORT INFORMATION
  Report Type: Spontaneous
  Country: US (occurrence: US)
  Receive Date: 20130221
  Receipt Date: 20130501
  Transmission Date: 20140414
  Serious: Yes (Other)
  Sender: FDA-Public Use
  Company Number: PHHY2013US016087

PATIENT
  Age: 60 Year
  Sex: Male

DRUGS (10)
  1. LIDOCAINE [Suspect]
     Indication: LOCAL ANAESTHESIA
     Dosage: 2 %,
  2. METOPROLOL [Interacting]
     Dosage: 50 MG, DAILY
  3. LIDOCAINE [Interacting]
     Indication: LOCAL ANAESTHESIA
     Dosage: 4 %,
  4. LIDOCAINE [Interacting]
  5. LIDOCAINE [Suspect]
     Indication: LOCAL ANAESTHESIA
     Dosage: 5 %,
     Route: 061
  6. WARFARIN [Concomitant]
     Dosage: 5 MG, PER DAY
  7. LISINOPRIL [Concomitant]
     Dosage: 2.5 MG, DAILY
  8. DOCUSATE SODIUM [Concomitant]
     Dosage: 100 MG, DAILY
  9. POTASSIUM CHLORIDE [Concomitant]
     Dosage: 20 MG, PER DAY
  10. FUROSEMIDE [Concomitant]
     Dosage: 40 MG, EACH DAY

REACTIONS (4)
  - Toxicity to various agents [Recovered/Resolved]
  - Drug interaction [Unknown]
  - Oedema peripheral [Recovered/Resolved]
  - Heart rate irregular [Recovered/Resolved]
